FAERS Safety Report 5041240-0 (Version None)
Quarter: 2006Q3

REPORT INFORMATION
  Report Type: 
  Country: None (occurrence: None)
  Receive Date: 20060703
  Receipt Date: 20060627
  Transmission Date: 20061208
  Serious: Yes (Hospitalization)
  Sender: FDA-Public Use
  Company Number: 452540

PATIENT
  Age: 60 Year
  Sex: Female

DRUGS (3)
  1. DILATREND [Suspect]
     Indication: CARDIAC FAILURE
     Dosage: 6.25MG PER DAY
     Route: 065
     Dates: start: 20060519, end: 20060607
  2. LIPANTHYL [Concomitant]
     Dates: start: 20060518, end: 20060602
  3. GLUTATHIONE [Concomitant]

REACTIONS (1)
  - HEPATIC FUNCTION ABNORMAL [None]
